FAERS Safety Report 9336696 (Version 1)
Quarter: 2013Q2

REPORT INFORMATION
  Report Type: Spontaneous
  Country: AT (occurrence: AT)
  Receive Date: 20130607
  Receipt Date: 20130607
  Transmission Date: 20140414
  Serious: Yes (Death)
  Sender: FDA-Public Use
  Company Number: AT-ASTELLAS-2013EU004850

PATIENT
  Sex: Male

DRUGS (4)
  1. TACROLIMUS SYSTEMIC [Suspect]
     Indication: LUNG TRANSPLANT
     Dosage: UNK
     Route: 065
  2. ALEMTUZUMAB [Concomitant]
     Indication: LUNG TRANSPLANT
     Dosage: 30 MG, SINGLE DOSE
     Route: 065
  3. METHYLPREDNISOLON                  /00049601/ [Concomitant]
     Indication: LUNG TRANSPLANT
     Dosage: 125 MG, THREE DOSES
     Route: 065
  4. PREDNISOLONE [Concomitant]
     Indication: LUNG TRANSPLANT
     Dosage: UNK
     Route: 065

REACTIONS (3)
  - Off label use [Unknown]
  - Acute hepatic failure [Fatal]
  - Lung infection [Fatal]
